FAERS Safety Report 9286622 (Version 1)
Quarter: 2013Q2

REPORT INFORMATION
  Report Type: Report from Study
  Country: CA (occurrence: CA)
  Receive Date: 20130513
  Receipt Date: 20130513
  Transmission Date: 20140414
  Serious: Yes (Death)
  Sender: FDA-Public Use
  Company Number: PHHY2013CA046295

PATIENT
  Age: 32 Year
  Sex: Male

DRUGS (6)
  1. CLOZARIL [Suspect]
     Dosage: 75 MG, 1 EVERY DAY
  2. ATENOLOL [Suspect]
     Dosage: 20 MG, 1 EVERY DAY
  3. FLUOXETINE [Suspect]
     Dosage: 50 MG, 1 EVERY DAY
  4. METFORMIN [Suspect]
     Dosage: 500 MG, 3 EVERY DAY
  5. BENZTROPINE MESYLATE [Suspect]
     Dosage: 2 MG, 2 EVERY DAY
  6. LIPITOR [Suspect]
     Dosage: 1 TABLET EVERY 1 DAY

REACTIONS (1)
  - Myocardial infarction [Fatal]
